FAERS Safety Report 9862862 (Version 1)
Quarter: 2014Q1

REPORT INFORMATION
  Report Type: Spontaneous
  Country: PK (occurrence: PK)
  Receive Date: 20140203
  Receipt Date: 20140203
  Transmission Date: 20141002
  Serious: Yes (Other)
  Sender: FDA-Public Use
  Company Number: PHHY2014PK009901

PATIENT
  Age: 31 Year
  Sex: Male
  Weight: 72 kg

DRUGS (2)
  1. CATAFLAM [Suspect]
     Indication: BACK PAIN
     Dosage: 50 MG, BID
     Route: 048
     Dates: start: 20140119, end: 20140121
  2. TERNELIN [Suspect]
     Indication: BACK PAIN
     Dosage: 2 MG, BID
     Route: 048
     Dates: start: 20140119, end: 20140121

REACTIONS (1)
  - Rash pustular [Recovering/Resolving]
